FAERS Safety Report 17877227 (Version 5)
Quarter: 2020Q3

REPORT INFORMATION
  Report Type: Report from Study
  Country: US (occurrence: US)
  Receive Date: 20200609
  Receipt Date: 20200819
  Transmission Date: 20201103
  Serious: Yes (Hospitalization, Other)
  Sender: FDA-Public Use
  Company Number: US-ACTELION-A-NJ2020-204970

PATIENT
  Age: 71 Year
  Sex: Female
  Weight: 58.96 kg

DRUGS (14)
  1. UPTRAVI [Suspect]
     Active Substance: SELEXIPAG
     Indication: PULMONARY ARTERIAL HYPERTENSION
     Dosage: UNK
     Route: 048
     Dates: start: 20200630
  2. BIOTIN [Concomitant]
     Active Substance: BIOTIN
  3. MAGNESIUM [Concomitant]
     Active Substance: MAGNESIUM
  4. OPSUMIT [Suspect]
     Active Substance: MACITENTAN
     Indication: PULMONARY ARTERIAL HYPERTENSION
     Dosage: 10 MG, QD
     Route: 048
     Dates: start: 20200416, end: 20200513
  5. SILDENAFIL. [Concomitant]
     Active Substance: SILDENAFIL
     Dosage: 10 MG, TID
  6. VITAMIN B COMPLEX NOS [Concomitant]
     Active Substance: CYANOCOBALAMIN\PYRIDOXINE HYDROCHLORIDE\RIBOFLAVIN\SODIUM PANTOTHENATE\THIAMINE HYDROCHLORIDE\VITAMIN B COMPLEX
  7. UPTRAVI [Suspect]
     Active Substance: SELEXIPAG
     Dosage: 800 MCG, BID
     Route: 048
     Dates: start: 20200721
  8. POTASSIUM [Concomitant]
     Active Substance: POTASSIUM
  9. UPTRAVI [Suspect]
     Active Substance: SELEXIPAG
     Dosage: 600 MCG, BID
     Route: 048
  10. ASPIRIN 81 [Concomitant]
     Active Substance: ASPIRIN
  11. ULTRACET [Concomitant]
     Active Substance: ACETAMINOPHEN\TRAMADOL HYDROCHLORIDE
  12. TORSEMIDE. [Concomitant]
     Active Substance: TORSEMIDE
  13. SKELAXIN [METAXALONE] [Concomitant]
  14. METAXALONE. [Concomitant]
     Active Substance: METAXALONE

REACTIONS (16)
  - Transfusion [Unknown]
  - Dyspnoea [Unknown]
  - Haemorrhoids [Unknown]
  - Haemoglobin decreased [Recovered/Resolved]
  - Reflux gastritis [Unknown]
  - Malaise [Unknown]
  - Muscle spasms [Unknown]
  - Gastrointestinal haemorrhage [Recovered/Resolved]
  - Therapy non-responder [Unknown]
  - Condition aggravated [Unknown]
  - Large intestine polyp [Unknown]
  - Erosive oesophagitis [Unknown]
  - Diverticulitis [Unknown]
  - Muscular weakness [Unknown]
  - Blood pressure decreased [Unknown]
  - Myalgia [Not Recovered/Not Resolved]

NARRATIVE: CASE EVENT DATE: 2020
